FAERS Safety Report 7444642-8 (Version None)
Quarter: 2011Q2

REPORT INFORMATION
  Report Type: 
  Country: None (occurrence: None)
  Receive Date: 20110429
  Receipt Date: 20110427
  Transmission Date: 20111010
  Serious: No
  Sender: FDA-Public Use
  Company Number: US-PFIZER INC-2011091144

PATIENT
  Sex: Female
  Weight: 63 kg

DRUGS (4)
  1. ZYRTEC-D 12 HOUR [Concomitant]
     Indication: ASTHMA
     Dosage: UNK
  2. LYRICA [Suspect]
     Indication: TRIGEMINAL NEURALGIA
     Dosage: 75 MG, 2X/DAY
     Route: 048
     Dates: start: 20101206
  3. FLOVENT [Concomitant]
     Indication: ASTHMA
     Dosage: UNK
  4. MONTELUKAST [Concomitant]
     Indication: ASTHMA
     Dosage: 10 MG, 2X/DAY

REACTIONS (3)
  - WEIGHT INCREASED [None]
  - DYSPNOEA [None]
  - PAIN [None]
